FAERS Safety Report 10258326 (Version 3)
Quarter: 2014Q2

REPORT INFORMATION
  Report Type: Report from Study
  Country: US (occurrence: US)
  Receive Date: 20140625
  Receipt Date: 20140627
  Transmission Date: 20141212
  Serious: Yes (Hospitalization, Other)
  Sender: FDA-Public Use
  Company Number: US-SA-2014SA073204

PATIENT
  Age: 3 Year
  Sex: Male
  Weight: 13.5 kg

DRUGS (8)
  1. CLOFARABINE [Suspect]
     Indication: B PRECURSOR TYPE ACUTE LEUKAEMIA
     Route: 065
     Dates: start: 20140314
  2. CLOFARABINE [Suspect]
     Indication: B PRECURSOR TYPE ACUTE LEUKAEMIA
     Dosage: 12 MG X 5 DOSES
     Route: 065
     Dates: start: 20140516
  3. CYCLOPHOSPHAMIDE [Suspect]
     Indication: B PRECURSOR TYPE ACUTE LEUKAEMIA
     Route: 065
     Dates: start: 20140314
  4. CYCLOPHOSPHAMIDE [Suspect]
     Indication: B PRECURSOR TYPE ACUTE LEUKAEMIA
     Dosage: 265 MGX 5 DOSES (DAY 29)+620 MG (DAY 1)=1945 MG
     Route: 065
     Dates: start: 20140516
  5. ETOPOSIDE [Suspect]
     Indication: B PRECURSOR TYPE ACUTE LEUKAEMIA
     Route: 065
     Dates: start: 20140314
  6. ETOPOSIDE [Suspect]
     Indication: B PRECURSOR TYPE ACUTE LEUKAEMIA
     Dosage: 60 MGX 5 DAYS
     Route: 065
     Dates: start: 20140516
  7. PEG-L-ASPARAGINASE [Suspect]
     Indication: B PRECURSOR TYPE ACUTE LEUKAEMIA
     Dosage: 1525 IU
     Route: 065
     Dates: start: 20140530
  8. VINCRISTINE SULFATE [Suspect]
     Indication: B PRECURSOR TYPE ACUTE LEUKAEMIA
     Dosage: 1.8 MG
     Route: 065
     Dates: start: 20140530

REACTIONS (7)
  - Hypoalbuminaemia [Recovering/Resolving]
  - Clostridium difficile infection [Recovering/Resolving]
  - Pneumonia [Recovering/Resolving]
  - Diarrhoea [Recovering/Resolving]
  - Pyrexia [Recovering/Resolving]
  - Lipase increased [Recovering/Resolving]
  - Amylase increased [Recovering/Resolving]
